FAERS Safety Report 4412526-5 (Version None)
Quarter: 2004Q2

REPORT INFORMATION
  Report Type: 
  Country: None (occurrence: None)
  Receive Date: 20040630
  Receipt Date: 20040405
  Transmission Date: 20050107
  Serious: No
  Sender: FDA-Public Use
  Company Number: 04P-163-0255993-00

PATIENT
  Age: 66 Year
  Sex: Female
  Weight: 74.8435 kg

DRUGS (5)
  1. HUMIRA [Suspect]
     Indication: RHEUMATOID ARTHRITIS
     Dosage: 40 MG, SUBCUTANEOUS
     Route: 058
     Dates: start: 20040223
  2. DICLOFENAC SODIUM [Concomitant]
  3. METHOTREXATE [Concomitant]
  4. HYDROXYCHLOROQUINE PHOSPHATE [Concomitant]
  5. MULTIVITAMIN [Concomitant]

REACTIONS (3)
  - RASH PAPULAR [None]
  - RASH SCALY [None]
  - SKIN DISORDER [None]
